FAERS Safety Report 24773957 (Version 3)
Quarter: 2025Q3

REPORT INFORMATION
  Report Type: Spontaneous
  Country: US (occurrence: US)
  Receive Date: 20241225
  Receipt Date: 20250809
  Transmission Date: 20251021
  Serious: Yes (Death, Other)
  Sender: ALEXION PHARMACEUTICALS
  Company Number: US-AstraZeneca-CH-00772775A

PATIENT
  Sex: Female

DRUGS (1)
  1. LYNPARZA [Suspect]
     Active Substance: OLAPARIB
     Dates: start: 202001, end: 202301

REACTIONS (10)
  - Acute myeloid leukaemia [Fatal]
  - Neuropathy peripheral [Unknown]
  - Myeloid leukaemia [Unknown]
  - Condition aggravated [Unknown]
  - Haemoglobin abnormal [Unknown]
  - Arthralgia [Unknown]
  - Haematocrit decreased [Unknown]
  - White blood cell count abnormal [Unknown]
  - Malaise [Unknown]
  - Oxygen saturation decreased [Unknown]
